FAERS Safety Report 17186770 (Version 2)
Quarter: 2019Q4

REPORT INFORMATION
  Report Type: Report from Study
  Country: LB (occurrence: LB)
  Receive Date: 20191220
  Receipt Date: 20191224
  Transmission Date: 20200122
  Serious: Yes (Life-Threatening, Hospitalization)
  Sender: FDA-Public Use
  Company Number: NVSC2019LB062775

PATIENT
  Age: 56 Year
  Sex: Male
  Weight: 65 kg

DRUGS (8)
  1. AERIUS [Concomitant]
     Indication: PREMEDICATION
     Dosage: UNK
     Route: 065
     Dates: start: 20191028
  2. JANUMET [Concomitant]
     Active Substance: METFORMIN HYDROCHLORIDE\SITAGLIPTIN PHOSPHATE
     Indication: TYPE 2 DIABETES MELLITUS
     Dosage: UNK
     Route: 065
     Dates: start: 20170101
  3. SOLU-MEDROL [Concomitant]
     Active Substance: METHYLPREDNISOLONE SODIUM SUCCINATE
     Indication: PREMEDICATION
     Dosage: UNK
     Route: 065
     Dates: start: 20191028
  4. ZOFRAN [Concomitant]
     Active Substance: ONDANSETRON HYDROCHLORIDE
     Indication: PREMEDICATION
     Dosage: UNK
     Route: 065
     Dates: start: 20191028
  5. PHENERGAN [Concomitant]
     Active Substance: PROMETHAZINE HYDROCHLORIDE
     Indication: PREMEDICATION
     Dosage: UNK
     Route: 065
     Dates: start: 20191028
  6. COMPARATOR DOCETAXEL [Suspect]
     Active Substance: DOCETAXEL
     Indication: NON-SMALL CELL LUNG CANCER
     Dosage: 130 MG, Q3W
     Route: 042
     Dates: start: 20191028
  7. PANADOL [Concomitant]
     Active Substance: ACETAMINOPHEN
     Indication: FLANK PAIN
     Dosage: UNK
     Route: 065
     Dates: start: 20191001
  8. CANAKINUMAB. [Suspect]
     Active Substance: CANAKINUMAB
     Indication: NON-SMALL CELL LUNG CANCER
     Dosage: UNK
     Route: 058
     Dates: start: 20191028

REACTIONS (2)
  - Hypotension [Recovered/Resolved]
  - Anaemia [Recovered/Resolved]

NARRATIVE: CASE EVENT DATE: 20191202
